FAERS Safety Report 21477256 (Version 1)
Quarter: 2022Q4

REPORT INFORMATION
  Report Type: Report from Study
  Country: US (occurrence: US)
  Receive Date: 20221019
  Receipt Date: 20221019
  Transmission Date: 20230112
  Serious: Yes (Hospitalization, Other)
  Sender: FDA-Public Use
  Company Number: US-BRISTOL-MYERS SQUIBB COMPANY-2022-122788

PATIENT
  Age: 81 Year
  Sex: Female
  Weight: 61.23 kg

DRUGS (1)
  1. POMALYST [Suspect]
     Active Substance: POMALIDOMIDE
     Indication: Product used for unknown indication
     Dosage: DAILY 21 DAYS 7 DAYS OFF
     Route: 048
     Dates: start: 202208

REACTIONS (3)
  - Constipation [Unknown]
  - Fatigue [Unknown]
  - Hip fracture [Unknown]

NARRATIVE: CASE EVENT DATE: 20220101
